FAERS Safety Report 12337448 (Version 1)
Quarter: 2016Q2

REPORT INFORMATION
  Report Type: Spontaneous
  Country: US (occurrence: None)
  Receive Date: 20160504
  Receipt Date: 20160504
  Transmission Date: 20160815
  Serious: No
  Sender: FDA-Public Use
  Company Number: None

PATIENT
  Age: 65 Year
  Sex: Female

DRUGS (2)
  1. RIBAVIRIN TAB 200MG [Suspect]
     Active Substance: RIBAVIRIN
     Route: 048
     Dates: start: 20160317
  2. HARVONI [Suspect]
     Active Substance: LEDIPASVIR\SOFOSBUVIR
     Dosage: 90/400MG QDAY ORAL
     Route: 048
     Dates: start: 20160317

REACTIONS (1)
  - Fatigue [None]

NARRATIVE: CASE EVENT DATE: 20160503
